FAERS Safety Report 20126538 (Version 2)
Quarter: 2022Q3

REPORT INFORMATION
  Report Type: Report from Study
  Country: US (occurrence: US)
  Receive Date: 20211129
  Receipt Date: 20220722
  Transmission Date: 20221026
  Serious: No
  Sender: FDA-Public Use
  Company Number: US-GILEAD-2021-0552898

PATIENT
  Age: 28 Year
  Sex: Female
  Weight: 51.9 kg

DRUGS (11)
  1. PREDNISONE [Concomitant]
     Active Substance: PREDNISONE
     Indication: Asthma
  2. ZITHROMAX [Concomitant]
     Active Substance: AZITHROMYCIN DIHYDRATE
     Indication: Bronchitis
  3. ZITHROMAX [Concomitant]
     Active Substance: AZITHROMYCIN DIHYDRATE
     Indication: Upper respiratory tract infection
  4. TIVICAY [Concomitant]
     Active Substance: DOLUTEGRAVIR SODIUM
     Indication: HIV infection
  5. DORAVIRINE [Concomitant]
     Active Substance: DORAVIRINE
     Indication: HIV infection
  6. MINERALS\VITAMINS [Concomitant]
     Active Substance: MINERALS\VITAMINS
  7. CALCIUM\VITAMIN D [Concomitant]
     Active Substance: CALCIUM\VITAMIN D
  8. ALBUTEROL SULFATE [Concomitant]
     Active Substance: ALBUTEROL SULFATE
     Indication: Asthma
  9. ZIDOVUDINE [Concomitant]
     Active Substance: ZIDOVUDINE
     Indication: Prophylaxis against HIV infection
     Dosage: UNK
     Dates: start: 20220603, end: 20220603
  10. PITOCIN [Concomitant]
     Active Substance: OXYTOCIN
  11. CERVIDIL [DINOPROSTONE] [Concomitant]
     Dosage: UNK
     Dates: start: 20220603, end: 20220603

REACTIONS (1)
  - Maternal exposure during pregnancy [Recovered/Resolved]

NARRATIVE: CASE EVENT DATE: 20210901
